FAERS Safety Report 9280926 (Version 1)
Quarter: 2013Q2

REPORT INFORMATION
  Report Type: Spontaneous
  Country: FR (occurrence: FR)
  Receive Date: 20130509
  Receipt Date: 20130509
  Transmission Date: 20140414
  Serious: Yes (Death, Hospitalization)
  Sender: FDA-Public Use
  Company Number: FR-PFIZER INC-2006018806

PATIENT
  Age: 84 Year
  Sex: Male

DRUGS (13)
  1. PANTOPRAZOLE [Suspect]
     Indication: ABDOMINAL PAIN UPPER
     Route: 048
     Dates: start: 20050322, end: 20050324
  2. KEFANDOL [Suspect]
     Indication: ANTIBIOTIC PROPHYLAXIS
     Route: 065
     Dates: start: 20050323, end: 20050324
  3. HYPNOVEL [Concomitant]
     Route: 065
     Dates: start: 20050322, end: 20050322
  4. LOVENOX [Concomitant]
     Route: 030
     Dates: start: 20050322, end: 20050322
  5. PARACETAMOL [Concomitant]
     Route: 042
     Dates: start: 20050322, end: 20050323
  6. PARACETAMOL [Concomitant]
     Route: 042
     Dates: start: 20050328, end: 20050329
  7. ESTRACYT [Concomitant]
     Route: 048
  8. LYTOS [Concomitant]
     Route: 048
  9. CORTANCYL [Concomitant]
     Route: 048
  10. ARICEPT [Concomitant]
     Route: 048
  11. PYOSTACINE [Concomitant]
     Route: 048
  12. FLUIMICIL [Concomitant]
     Route: 065
  13. DUROGESIC [Concomitant]
     Route: 062

REACTIONS (5)
  - Pancytopenia [Fatal]
  - Coma [Unknown]
  - Petechiae [Unknown]
  - Gingival bleeding [Unknown]
  - Haematuria [Unknown]
